FAERS Safety Report 4968456-3 (Version None)
Quarter: 2006Q2

REPORT INFORMATION
  Report Type: 
  Country: None (occurrence: None)
  Receive Date: 20060410
  Receipt Date: 20060331
  Transmission Date: 20061013
  Serious: Yes (Disabling)
  Sender: FDA-Public Use
  Company Number: US-MERCK-0604USA00531

PATIENT
  Sex: Male

DRUGS (1)
  1. VIOXX [Suspect]
     Route: 048
     Dates: start: 20030101, end: 20040101

REACTIONS (5)
  - DEEP VEIN THROMBOSIS [None]
  - EYE DISORDER [None]
  - NERVOUS SYSTEM DISORDER [None]
  - PAIN [None]
  - THROMBOSIS [None]
